FAERS Safety Report 7327944-5 (Version None)
Quarter: 2011Q1

REPORT INFORMATION
  Report Type: 
  Country: None (occurrence: None)
  Receive Date: 20110303
  Receipt Date: 20110224
  Transmission Date: 20110831
  Serious: Yes (Other)
  Sender: FDA-Public Use
  Company Number: JP-JNJFOC-20110300013

PATIENT

DRUGS (2)
  1. DUROTEP MT [Suspect]
     Indication: PRODUCT USED FOR UNKNOWN INDICATION
     Dosage: AOUND ON 17-FEB-2011
     Route: 062
  2. DUROTEP MT [Suspect]
     Route: 062

REACTIONS (2)
  - DELIRIUM [None]
  - INSOMNIA [None]
